FAERS Safety Report 6049108-8 (Version None)
Quarter: 2009Q1

REPORT INFORMATION
  Report Type: 
  Country: None (occurrence: None)
  Receive Date: 20090123
  Receipt Date: 20090109
  Transmission Date: 20090719
  Serious: Yes (Hospitalization, Other)
  Sender: FDA-Public Use
  Company Number: DE-AVENTIS-200910357US

PATIENT
  Sex: Female
  Weight: 70 kg

DRUGS (5)
  1. SULFONAMIDES, UREA DERIVATIVES [Suspect]
     Indication: DIABETES MELLITUS
     Dosage: DOSE: UNK
  2. GLUCOPHAGE [Suspect]
     Indication: DIABETES MELLITUS
     Dates: start: 20081221
  3. GLUCOPHAGE [Suspect]
     Dates: end: 20081220
  4. MICRONASE [Suspect]
     Indication: DIABETES MELLITUS
  5. AVANDIA [Suspect]
     Indication: DIABETES MELLITUS
     Dosage: DOSE: UNK

REACTIONS (7)
  - BLOOD GLUCOSE DECREASED [None]
  - BLOOD GLUCOSE INCREASED [None]
  - CARDIAC DISORDER [None]
  - DIARRHOEA [None]
  - FLATULENCE [None]
  - GLYCOSYLATED HAEMOGLOBIN INCREASED [None]
  - PNEUMONIA [None]
